FAERS Safety Report 24692942 (Version 1)
Quarter: 2024Q4

REPORT INFORMATION
  Report Type: Spontaneous
  Country: IE (occurrence: IE)
  Receive Date: 20241203
  Receipt Date: 20241203
  Transmission Date: 20250115
  Serious: Yes (Other)
  Sender: UCB
  Company Number: IE-UCBSA-2024062292

PATIENT
  Age: 9 Year
  Sex: Male
  Weight: 21 kg

DRUGS (18)
  1. FINTEPLA [Suspect]
     Active Substance: FENFLURAMINE
     Indication: Seizure
     Dosage: 2X0.5 ML
     Dates: start: 202403, end: 2024
  2. FINTEPLA [Suspect]
     Active Substance: FENFLURAMINE
     Dosage: 2X2ML
     Dates: start: 2024, end: 202405
  3. FINTEPLA [Suspect]
     Active Substance: FENFLURAMINE
     Dosage: 2X3.2 ML
     Dates: start: 202410, end: 2024
  4. FINTEPLA [Suspect]
     Active Substance: FENFLURAMINE
     Dosage: 2X1.8 ML
     Dates: start: 2024, end: 2024
  5. FINTEPLA [Suspect]
     Active Substance: FENFLURAMINE
     Dosage: 2X1.6 ML
  6. KEPPRA [Suspect]
     Active Substance: LEVETIRACETAM
     Indication: Epilepsy
     Dosage: UNK
  7. BRIVIACT [Suspect]
     Active Substance: BRIVARACETAM
     Indication: Epilepsy
     Dosage: UNK
  8. VIMPAT [Suspect]
     Active Substance: LACOSAMIDE
     Indication: Epilepsy
     Dosage: 175 MILLIGRAM
  9. TEGRETOL [Concomitant]
     Active Substance: CARBAMAZEPINE
     Indication: Epilepsy
     Dosage: UNK
  10. TOPAMAX [Concomitant]
     Active Substance: TOPIRAMATE
     Indication: Epilepsy
     Dosage: UNK
  11. CLOBAZAM [Concomitant]
     Active Substance: CLOBAZAM
     Indication: Epilepsy
     Dosage: UNK
  12. LAMICTAL [Concomitant]
     Active Substance: LAMOTRIGINE
     Indication: Epilepsy
     Dosage: UNK
  13. ZONEGRAN [Concomitant]
     Active Substance: ZONISAMIDE
     Indication: Epilepsy
     Dosage: UNK
  14. CENOBAMATE [Concomitant]
     Active Substance: CENOBAMATE
     Indication: Epilepsy
  15. VALPROATE SODIUM [Concomitant]
     Active Substance: VALPROATE SODIUM
     Indication: Epilepsy
     Dosage: UNK
  16. SOTICLESTAT [Concomitant]
     Active Substance: SOTICLESTAT
     Indication: Epilepsy
     Dosage: UNK
  17. EUNOCTIN [Concomitant]
     Indication: Epilepsy
     Dosage: 10 MILLIGRAM
  18. TALOXA [FELBAMATE] [Concomitant]
     Indication: Epilepsy
     Dosage: 750 MILLIGRAM

REACTIONS (7)
  - Tonic convulsion [Recovered/Resolved]
  - Seizure [Recovered/Resolved]
  - Behaviour disorder [Recovering/Resolving]
  - Eye movement disorder [Unknown]
  - Disturbance in attention [Unknown]
  - Hypersomnia [Unknown]
  - Illness [Unknown]

NARRATIVE: CASE EVENT DATE: 20240101
